FAERS Safety Report 7633555-4 (Version None)
Quarter: 2011Q3

REPORT INFORMATION
  Report Type: 
  Country: None (occurrence: None)
  Receive Date: 20110725
  Receipt Date: 20110630
  Transmission Date: 20111222
  Serious: Yes (Hospitalization)
  Sender: FDA-Public Use
  Company Number: US-GLAXOSMITHKLINE-A0764952A

PATIENT
  Age: 51 Year
  Sex: Male
  Weight: 103.2 kg

DRUGS (5)
  1. AVANDIA [Suspect]
     Indication: TYPE 2 DIABETES MELLITUS
     Route: 048
     Dates: start: 20010201, end: 20070615
  2. ASPIRIN [Concomitant]
  3. LISINOPRIL [Concomitant]
  4. PRILOSEC [Concomitant]
  5. GLYBURIDE [Concomitant]

REACTIONS (3)
  - CORONARY ARTERY DISEASE [None]
  - DEVICE OCCLUSION [None]
  - PAIN [None]
